FAERS Safety Report 5589648-9 (Version None)
Quarter: 2008Q1

REPORT INFORMATION
  Report Type: 
  Country: None (occurrence: None)
  Receive Date: 20080114
  Receipt Date: 20080103
  Transmission Date: 20080703
  Serious: Yes (Other)
  Sender: FDA-Public Use
  Company Number: B0361359A

PATIENT
  Age: 31 Year
  Sex: Female

DRUGS (3)
  1. PAROXETINE HYDROCHLORIDE [Suspect]
     Route: 065
     Dates: start: 20000104
  2. LUSTRAL [Concomitant]
     Dates: start: 20030129
  3. CIPRALEX [Concomitant]
     Dates: start: 20030322

REACTIONS (18)
  - ABNORMAL DREAMS [None]
  - AGGRESSION [None]
  - AGORAPHOBIA [None]
  - ANXIETY [None]
  - CRYING [None]
  - DEPRESSION [None]
  - DRUG WITHDRAWAL SYNDROME [None]
  - FEAR [None]
  - MALAISE [None]
  - MENTAL DISORDER [None]
  - NAUSEA [None]
  - NIGHT SWEATS [None]
  - PALPITATIONS [None]
  - PERSONALITY CHANGE [None]
  - SELF-INJURIOUS IDEATION [None]
  - SOMNOLENCE [None]
  - STRESS [None]
  - VOMITING [None]
